FAERS Safety Report 13650815 (Version 1)
Quarter: 2017Q2

REPORT INFORMATION
  Report Type: Spontaneous
  Country: US (occurrence: US)
  Receive Date: 20170614
  Receipt Date: 20170614
  Transmission Date: 20170830
  Serious: Yes (Other)
  Sender: FDA-Public Use
  Company Number: None

PATIENT
  Age: 68 Year
  Sex: Male
  Weight: 79.38 kg

DRUGS (4)
  1. FLORA PROBIOTIC [Concomitant]
  2. D-3 VITAMIN [Concomitant]
  3. PYCNOGENOL [Concomitant]
     Active Substance: DIETARY SUPPLEMENT
  4. LEVOFLOXACIN 250MG [Suspect]
     Active Substance: LEVOFLOXACIN
     Indication: URINARY TRACT INFECTION
     Route: 048
     Dates: start: 201612, end: 201612

REACTIONS (3)
  - Tendon disorder [None]
  - Musculoskeletal pain [None]
  - Tendon pain [None]

NARRATIVE: CASE EVENT DATE: 20161228
